FAERS Safety Report 7127904-3 (Version None)
Quarter: 2010Q4

REPORT INFORMATION
  Report Type: 
  Country: None (occurrence: None)
  Receive Date: 20101130
  Receipt Date: 20101118
  Transmission Date: 20110411
  Serious: Yes (Other)
  Sender: FDA-Public Use
  Company Number: US-JNJFOC-20101107305

PATIENT
  Sex: Male
  Weight: 73.21 kg

DRUGS (12)
  1. REMICADE [Suspect]
     Indication: ARTHRITIS
     Route: 042
  2. COUMADIN [Concomitant]
     Indication: CARDIAC DISORDER
     Route: 048
  3. ASPIRIN [Concomitant]
     Indication: CARDIAC DISORDER
     Route: 048
  4. METOPROLOL [Concomitant]
     Indication: CARDIAC DISORDER
     Dosage: 1 TABLET IN AM, 1/2 TABLET IN PM
     Route: 048
  5. NIASPAN [Concomitant]
     Indication: ANGIOPATHY
     Route: 048
  6. METHYLPREDNISOLONE [Concomitant]
     Indication: ARTHRITIS
     Route: 048
  7. METHOTREXATE [Concomitant]
     Indication: ARTHRITIS
     Route: 048
  8. VYTORIN [Concomitant]
     Indication: ANGIOPATHY
     Route: 048
  9. FISH OIL [Concomitant]
     Indication: ARTHRITIS
     Route: 048
  10. FOLIC ACID [Concomitant]
     Indication: ARTHRITIS
     Route: 048
  11. CALCIUM [Concomitant]
     Indication: ARTHRITIS
     Route: 048
  12. OXYCONTIN [Concomitant]
     Indication: ARTHRALGIA
     Route: 048

REACTIONS (4)
  - ACTIVITIES OF DAILY LIVING IMPAIRED [None]
  - AORTIC ANEURYSM [None]
  - MUSCULOSKELETAL STIFFNESS [None]
  - PAIN [None]
